FAERS Safety Report 8959344 (Version 1)
Quarter: 2012Q4

REPORT INFORMATION
  Report Type: Spontaneous
  Country: US (occurrence: None)
  Receive Date: 20121128
  Receipt Date: 20121128
  Transmission Date: 20130627
  Serious: Yes (Other)
  Sender: FDA-Public Use
  Company Number: DKLU1086546

PATIENT
  Age: 2 Year
  Sex: Male

DRUGS (2)
  1. SABRIL [Suspect]
     Indication: GRAND MAL CONVULSION
     Dosage: AM
     Dates: start: 20110324
  2. PHENOBARBITAL (PHENOBARBITAL) [Concomitant]

REACTIONS (1)
  - Tracheitis [None]
